FAERS Safety Report 24243585 (Version 1)
Quarter: 2024Q3

REPORT INFORMATION
  Report Type: Spontaneous
  Country: US (occurrence: None)
  Receive Date: 20240823
  Receipt Date: 20240823
  Transmission Date: 20241016
  Serious: Yes (Hospitalization, Other)
  Sender: EMMAUS LIFE SCIENCES
  Company Number: US-ARIS GLOBAL-EMM202307-000147

PATIENT
  Age: 10 Year
  Sex: Female
  Weight: 26.6 kg

DRUGS (5)
  1. ENDARI [Suspect]
     Active Substance: GLUTAMINE
     Indication: Sickle cell disease
     Dosage: 5 G
     Route: 048
     Dates: start: 2021
  2. ENDARI [Suspect]
     Active Substance: GLUTAMINE
     Dosage: 5 G
     Route: 048
     Dates: start: 202307
  3. HYDROXYUREA [Concomitant]
     Active Substance: HYDROXYUREA
     Indication: Product used for unknown indication
     Dosage: 300 MG
     Route: 065
  4. VITAMIN D [Concomitant]
     Active Substance: VITAMIN D NOS
     Indication: Product used for unknown indication
     Dosage: 100 MCG
     Route: 065
  5. FOLIC ACID [Concomitant]
     Active Substance: FOLIC ACID
     Indication: Product used for unknown indication
     Dosage: 1 MG
     Route: 065

REACTIONS (3)
  - Sickle cell anaemia with crisis [Unknown]
  - Hospitalisation [Unknown]
  - Pain in extremity [Not Recovered/Not Resolved]

NARRATIVE: CASE EVENT DATE: 20230101
